FAERS Safety Report 18342902 (Version 1)
Quarter: 2020Q4

REPORT INFORMATION
  Report Type: Spontaneous
  Country: US (occurrence: US)
  Receive Date: 20201002
  Receipt Date: 20201002
  Transmission Date: 20210113
  Serious: Yes (Death)
  Sender: FDA-Public Use
  Company Number: None

PATIENT
  Age: 68 Year
  Sex: Male
  Weight: 93.5 kg

DRUGS (9)
  1. IVIG IV MONTHLY [Concomitant]
  2. SERTRALINE 50 MG PO DAILY [Concomitant]
  3. DUVELISIB [Suspect]
     Active Substance: DUVELISIB
     Indication: CHRONIC LYMPHOCYTIC LEUKAEMIA
     Route: 048
     Dates: start: 20200801, end: 20200912
  4. QUETIAPINE UNK DOSE PO [Concomitant]
  5. SULFAMETHOXAZOLE-TRIMETHOPRIM PO EVERY MONDAY WEDNESDAY, FRIDAY [Concomitant]
  6. LISINOPRIL 5 MG PO DAILY [Concomitant]
  7. ALPRAZOLAM 0.5 MG PO PRN [Concomitant]
  8. ACYCLOVIR 800 MG PO EVERY 12 HOURS [Concomitant]
  9. IBRUTINIB [Suspect]
     Active Substance: IBRUTINIB
     Indication: CHRONIC LYMPHOCYTIC LEUKAEMIA
     Route: 048
     Dates: start: 20171103, end: 20200912

REACTIONS (3)
  - Supraventricular extrasystoles [None]
  - Palpitations [None]
  - Unresponsive to stimuli [None]

NARRATIVE: CASE EVENT DATE: 20200913
